FAERS Safety Report 16664631 (Version 1)
Quarter: 2019Q3

REPORT INFORMATION
  Report Type: Spontaneous
  Country: FR (occurrence: FR)
  Receive Date: 20190803
  Receipt Date: 20190803
  Transmission Date: 20191004
  Serious: Yes (Death, Hospitalization)
  Sender: FDA-Public Use
  Company Number: FR-ACCORD-150111

PATIENT
  Age: 98 Year
  Sex: Male

DRUGS (15)
  1. FLUIDABAK [Concomitant]
     Active Substance: POVIDONE
     Route: 047
  2. SPIRIVA [Concomitant]
     Active Substance: TIOTROPIUM BROMIDE MONOHYDRATE
     Route: 055
  3. DUORESP SPIROMAX [Concomitant]
     Active Substance: BUDESONIDE\FORMOTEROL
     Route: 048
  4. HUMALOG [Concomitant]
     Active Substance: INSULIN LISPRO
     Route: 058
  5. SPIRONOLACTONE. [Suspect]
     Active Substance: SPIRONOLACTONE
     Indication: HYPERTENSION
     Route: 048
     Dates: end: 20190126
  6. LASILIX [Suspect]
     Active Substance: FUROSEMIDE
     Indication: HYPERTENSION
     Route: 048
     Dates: end: 20190126
  7. LERCAN [Suspect]
     Active Substance: LERCANIDIPINE
     Indication: HYPERTENSION
     Dosage: STRENGTH: 10 MG
     Route: 048
     Dates: end: 20190126
  8. AMIODARONE [Concomitant]
     Active Substance: AMIODARONE
     Route: 048
  9. SILODYX [Suspect]
     Active Substance: SILODOSIN
     Indication: PROSTATITIS
     Route: 048
     Dates: end: 20190126
  10. TARDYFERON [Concomitant]
     Active Substance: FERROUS SULFATE
     Dosage: STRENGTH: 80 MG
     Route: 048
  11. LEVOTHYROX [Concomitant]
     Active Substance: LEVOTHYROXINE
     Dosage: STRENGTH: 50 MICROGRAMS, SCORED TABLET
     Route: 048
  12. CHIBRO-PROSCAR [Concomitant]
     Active Substance: FINASTERIDE
     Route: 048
  13. APROVEL [Suspect]
     Active Substance: IRBESARTAN
     Indication: HYPERTENSION
     Route: 048
     Dates: end: 20190126
  14. KARDEGIC [Concomitant]
     Active Substance: ASPIRIN DL-LYSINE
     Indication: THROMBOSIS PROPHYLAXIS
     Route: 048
     Dates: end: 20190126
  15. VERATRAN [Concomitant]
     Active Substance: CLOTIAZEPAM
     Dosage: STRENGTH: 10 MG, SCORED TABLET
     Route: 048

REACTIONS (1)
  - Fall [Fatal]

NARRATIVE: CASE EVENT DATE: 20190126
